FAERS Safety Report 15929175 (Version 1)
Quarter: 2019Q1

REPORT INFORMATION
  Report Type: Spontaneous
  Country: CN (occurrence: CN)
  Receive Date: 20190206
  Receipt Date: 20190206
  Transmission Date: 20190417
  Serious: Yes (Life-Threatening, Hospitalization)
  Sender: FDA-Public Use
  Company Number: CN-MYLANLABS-2019M1010673

PATIENT
  Age: 31 Year
  Sex: Female

DRUGS (5)
  1. MAGNESIUM SULFATE. [Suspect]
     Active Substance: MAGNESIUM SULFATE
     Indication: TOCOLYSIS
     Route: 065
  2. PROPOFOL. [Suspect]
     Active Substance: PROPOFOL
     Indication: SEIZURE
     Route: 065
  3. BUPIVACAINE. [Suspect]
     Active Substance: BUPIVACAINE
     Indication: SPINAL ANAESTHESIA
     Dosage: SPINAL ANAESTHESIA WAS PERFORMED IN LATERAL RECUMBENT POSITION AT THE L3 TO L4 INTERSPACE
     Route: 050
  4. EPHEDRINE. [Suspect]
     Active Substance: EPHEDRINE
     Indication: HAEMODYNAMIC INSTABILITY
     Route: 065
  5. DEXAMETHASONE. [Suspect]
     Active Substance: DEXAMETHASONE
     Indication: MATERNAL THERAPY TO ENHANCE FOETAL LUNG MATURITY
     Route: 065

REACTIONS (7)
  - Bradycardia [Recovered/Resolved]
  - Maternal exposure during delivery [Recovered/Resolved]
  - Brain hypoxia [Recovered/Resolved]
  - Seizure [Recovered/Resolved]
  - Maternal exposure during pregnancy [Recovered/Resolved]
  - Hypotension [Recovered/Resolved]
  - Apnoea [Recovered/Resolved]
